FAERS Safety Report 21584195 (Version 1)
Quarter: 2022Q4

REPORT INFORMATION
  Report Type: Spontaneous
  Country: NO (occurrence: NO)
  Receive Date: 20221111
  Receipt Date: 20221111
  Transmission Date: 20230113
  Serious: Yes (Other)
  Sender: FDA-Public Use
  Company Number: None

PATIENT
  Age: 26 Year
  Sex: Female
  Weight: 53 kg

DRUGS (3)
  1. CLARITHROMYCIN [Suspect]
     Active Substance: CLARITHROMYCIN
     Indication: Helicobacter infection
     Dosage: FORM STRENGTH AND UNIT DOSE: 500 MG, FREQ TIME: 12 HOURS
     Dates: start: 20221006
  2. PANTOPRAZOLE [Concomitant]
     Active Substance: PANTOPRAZOLE
     Indication: Peptic ulcer
     Dosage: FORM STRENGTH AND UNIT DOSE: 40 MG, FREQ TIME 12 HOURS
     Dates: start: 20221009
  3. AMOXICILLIN [Concomitant]
     Active Substance: AMOXICILLIN
     Indication: Helicobacter infection
     Dosage: STRENGTH AND DOSE: 750 MG, FREQ TIME 8 HOURS
     Dates: start: 20221009

REACTIONS (10)
  - Haematemesis [Not Recovered/Not Resolved]
  - Insomnia [Not Recovered/Not Resolved]
  - Back pain [Not Recovered/Not Resolved]
  - Diarrhoea [Unknown]
  - Retching [Unknown]
  - Fatigue [Unknown]
  - Appetite disorder [Unknown]
  - Disturbance in attention [Unknown]
  - Asthenia [Unknown]
  - Malaise [Unknown]

NARRATIVE: CASE EVENT DATE: 20221009
